FAERS Safety Report 25253281 (Version 3)
Quarter: 2025Q2

REPORT INFORMATION
  Report Type: Report from Study
  Country: US (occurrence: US)
  Receive Date: 20250430
  Receipt Date: 20250602
  Transmission Date: 20250716
  Serious: No
  Sender: SUNOVION
  Company Number: US-SMPA-2025SPA004257AA

PATIENT

DRUGS (22)
  1. ORGOVYX [Suspect]
     Active Substance: RELUGOLIX
     Indication: Prostate cancer
     Dosage: 120 MG, QD
     Route: 048
  2. METFORMIN [Concomitant]
     Active Substance: METFORMIN HYDROCHLORIDE
     Route: 065
  3. HUMALOG [Concomitant]
     Active Substance: INSULIN LISPRO
     Route: 065
  4. LANTUS [Concomitant]
     Active Substance: INSULIN GLARGINE
     Route: 065
  5. TAMSULOSIN [Concomitant]
     Active Substance: TAMSULOSIN
     Route: 065
  6. FINASTERIDE [Concomitant]
     Active Substance: FINASTERIDE
     Route: 065
  7. LISINOPRIL [Concomitant]
     Active Substance: LISINOPRIL
     Route: 065
  8. TIADYLT ER [Concomitant]
     Active Substance: DILTIAZEM HYDROCHLORIDE
     Route: 065
  9. ROSUVASTATIN [Concomitant]
     Active Substance: ROSUVASTATIN
     Route: 065
  10. PANTOPRAZOLE [Concomitant]
     Active Substance: PANTOPRAZOLE
     Route: 065
  11. LASIX [Concomitant]
     Active Substance: FUROSEMIDE
     Route: 048
  12. POTASSIUM CHLORIDE [Concomitant]
     Active Substance: POTASSIUM CHLORIDE
     Route: 065
  13. ASPIRIN [Concomitant]
     Active Substance: ASPIRIN
     Route: 065
  14. VITAMIN B12 [Concomitant]
     Active Substance: CYANOCOBALAMIN
     Route: 065
  15. VITAMIN D3 [Concomitant]
     Active Substance: CHOLECALCIFEROL
     Route: 065
  16. VITAMINS [Concomitant]
     Active Substance: VITAMINS
     Route: 065
  17. BICALUTAMIDE [Concomitant]
     Active Substance: BICALUTAMIDE
     Route: 065
  18. DILTIAZEM [Concomitant]
     Active Substance: DILTIAZEM
     Route: 065
  19. FERROUS SULFATE [Concomitant]
     Active Substance: FERROUS SULFATE
     Route: 065
  20. FUROSEMIDE [Concomitant]
     Active Substance: FUROSEMIDE
     Route: 065
  21. INSULIN LISPRO [Concomitant]
     Active Substance: INSULIN LISPRO
     Route: 065
  22. LEVOFLOXACIN [Concomitant]
     Active Substance: LEVOFLOXACIN
     Route: 065

REACTIONS (3)
  - Blood glucose fluctuation [Unknown]
  - Visual impairment [Unknown]
  - Hot flush [Unknown]
